FAERS Safety Report 6231726-5 (Version None)
Quarter: 2009Q2

REPORT INFORMATION
  Report Type: 
  Country: None (occurrence: None)
  Receive Date: 20090616
  Receipt Date: 20090604
  Transmission Date: 20091009
  Serious: Yes (Hospitalization)
  Sender: FDA-Public Use
  Company Number: JP-PFIZER INC-2008100052

PATIENT
  Age: 73 Year

DRUGS (6)
  1. SUNITINIB MALATE [Suspect]
     Indication: GASTROINTESTINAL STROMAL TUMOUR
     Dosage: 25 MG, 1X/DAY
     Route: 048
     Dates: start: 20081001, end: 20081027
  2. LASIX [Concomitant]
     Dosage: UNK
     Route: 048
  3. ALLOPURINOL [Concomitant]
     Dosage: UNK
     Route: 048
     Dates: start: 20081014
  4. HACHIAZULE [Concomitant]
     Dosage: UNK
     Dates: start: 20081021
  5. MYSER [Concomitant]
     Dosage: UNK
     Route: 062
     Dates: start: 20081022
  6. PASTARON [Concomitant]
     Dosage: UNK
     Route: 062
     Dates: start: 20081022

REACTIONS (4)
  - ANOREXIA [None]
  - CARDIAC FAILURE [None]
  - DYSPNOEA [None]
  - PLEURAL EFFUSION [None]
